FAERS Safety Report 12123535 (Version 1)
Quarter: 2016Q1

REPORT INFORMATION
  Report Type: Spontaneous
  Country: US (occurrence: None)
  Receive Date: 20160226
  Receipt Date: 20160226
  Transmission Date: 20160526
  Serious: Yes (Life-Threatening, Hospitalization, Disabling)
  Sender: FDA-Public Use
  Company Number: None

PATIENT
  Age: 60 Year
  Sex: Female
  Weight: 65.77 kg

DRUGS (14)
  1. ASPIRIN. [Concomitant]
     Active Substance: ASPIRIN
  2. VITAMIN C [Concomitant]
     Active Substance: ASCORBIC ACID
  3. LEVOTHYROXINE. [Concomitant]
     Active Substance: LEVOTHYROXINE
  4. POTASSIUM CHLORIDE ER [Concomitant]
     Active Substance: POTASSIUM CHLORIDE
  5. CITRACAL CALCIUM CITRATE [Concomitant]
  6. SIMVASTATIN. [Concomitant]
     Active Substance: SIMVASTATIN
  7. MAXIFLOXACIN HCL [Concomitant]
  8. OXYCODONE-ACETAMINOPHEN [Concomitant]
     Active Substance: ACETAMINOPHEN\OXYCODONE HYDROCHLORIDE
  9. MULTIVITAMIN [Concomitant]
     Active Substance: VITAMINS
  10. LOSARTAN/HCTZ [Concomitant]
     Active Substance: HYDROCHLOROTHIAZIDE\LOSARTAN
  11. FLUCONAZOLE. [Concomitant]
     Active Substance: FLUCONAZOLE
  12. TRUBIOTICS [Concomitant]
     Active Substance: BIFIDOBACTERIUM LONGUM\LACTOBACILLUS ACIDOPHILUS
  13. FOSAMAX [Suspect]
     Active Substance: ALENDRONATE SODIUM
     Indication: OSTEOPENIA
     Dosage: 1 PILL ONCE WEEKLY TAKEN BY MOUTH
     Route: 048
     Dates: start: 20030101, end: 20091231
  14. IRON [Concomitant]
     Active Substance: IRON

REACTIONS (3)
  - Osteonecrosis of jaw [None]
  - Tooth loss [None]
  - Osteomyelitis [None]

NARRATIVE: CASE EVENT DATE: 20150403
